FAERS Safety Report 5206466-1 (Version None)
Quarter: 2007Q1

REPORT INFORMATION
  Report Type: 
  Country: None (occurrence: None)
  Receive Date: 20070111
  Receipt Date: 20070105
  Transmission Date: 20070707
  Serious: Yes (Hospitalization, Disabling, Other)
  Sender: FDA-Public Use
  Company Number: FR-PFIZER INC-2007002283

PATIENT
  Age: 50 Year
  Sex: Male

DRUGS (1)
  1. ZOLOFT [Suspect]
     Dosage: TEXT:UNKNOWN

REACTIONS (3)
  - HYPOKALAEMIA [None]
  - PAIN [None]
  - PARALYSIS [None]
